FAERS Safety Report 9713798 (Version 2)
Quarter: 2014Q1

REPORT INFORMATION
  Report Type: Spontaneous
  Country: US (occurrence: US)
  Receive Date: 20131126
  Receipt Date: 20140129
  Transmission Date: 20141002
  Serious: No
  Sender: FDA-Public Use
  Company Number: US-009507513-1311USA011216

PATIENT
  Sex: Male

DRUGS (1)
  1. CLARITIN [Suspect]
     Indication: CHEMOTHERAPY
     Dosage: 10 MG, TID
     Route: 048
     Dates: start: 20131121

REACTIONS (2)
  - Overdose [Unknown]
  - Off label use [Unknown]
